FAERS Safety Report 11174832 (Version 1)
Quarter: 2015Q2

REPORT INFORMATION
  Report Type: Spontaneous
  Country: US (occurrence: None)
  Receive Date: 20150608
  Receipt Date: 20150608
  Transmission Date: 20150821
  Serious: Yes (Hospitalization)
  Sender: FDA-Public Use
  Company Number: None

PATIENT
  Age: 64 Year
  Sex: Male
  Weight: 78.9 kg

DRUGS (12)
  1. LANTUS [Concomitant]
     Active Substance: INSULIN GLARGINE
  2. ALDACTONE [Concomitant]
     Active Substance: SPIRONOLACTONE
  3. LACTULOSE. [Concomitant]
     Active Substance: LACTULOSE
  4. ZOLOFT [Concomitant]
     Active Substance: SERTRALINE HYDROCHLORIDE
  5. VITAMIN D3 [Concomitant]
     Active Substance: CHOLECALCIFEROL
  6. PANCRELIPASE. [Concomitant]
     Active Substance: PANCRELIPASE
  7. ZINC SULFATE [Concomitant]
     Active Substance: ZINC SULFATE\ZINC SULFATE ANHYDROUS
  8. LASIX [Concomitant]
     Active Substance: FUROSEMIDE
  9. HARVONI [Suspect]
     Active Substance: LEDIPASVIR\SOFOSBUVIR
     Indication: HEPATITIS C
     Route: 048
     Dates: start: 20150130
  10. NEURONTIN [Concomitant]
     Active Substance: GABAPENTIN
  11. VITAMIN D2 [Concomitant]
     Active Substance: ERGOCALCIFEROL
  12. VITAMIN A [Concomitant]
     Active Substance: VITAMIN A

REACTIONS (4)
  - Drug dose omission [None]
  - Urinary tract infection [None]
  - Hepatic encephalopathy [None]
  - Coma [None]

NARRATIVE: CASE EVENT DATE: 20150214
